FAERS Safety Report 12146258 (Version 1)
Quarter: 2016Q1

REPORT INFORMATION
  Report Type: Spontaneous
  Country: US (occurrence: US)
  Receive Date: 20160304
  Receipt Date: 20160304
  Transmission Date: 20160526
  Serious: No
  Sender: FDA-Public Use
  Company Number: US-MYLANLABS-2015M1044480

PATIENT
  Age: 59 Year
  Sex: Female

DRUGS (2)
  1. LIDOCAINE PATCH [Suspect]
     Active Substance: LIDOCAINE
     Indication: MUSCULOSKELETAL CHEST PAIN
     Dosage: 1 DF, QD, 12 HRS ON, 12 HRS OFF
     Route: 003
     Dates: start: 20151019, end: 201510
  2. LIDOCAINE PATCH [Suspect]
     Active Substance: LIDOCAINE
     Indication: OFF LABEL USE

REACTIONS (5)
  - Application site pruritus [Not Recovered/Not Resolved]
  - Application site exfoliation [Recovering/Resolving]
  - Application site urticaria [Not Recovered/Not Resolved]
  - Application site erythema [Not Recovered/Not Resolved]
  - Application site pain [Not Recovered/Not Resolved]

NARRATIVE: CASE EVENT DATE: 20151019
